FAERS Safety Report 16241907 (Version 2)
Quarter: 2019Q2

REPORT INFORMATION
  Report Type: Spontaneous
  Country: MX (occurrence: MX)
  Receive Date: 20190426
  Receipt Date: 20190620
  Transmission Date: 20190711
  Serious: Yes (Other)
  Sender: FDA-Public Use
  Company Number: MX-CONCORDIA PHARMACEUTICALS INC.-GSH201904-001258

PATIENT
  Sex: Female
  Weight: 78 kg

DRUGS (4)
  1. OMEPRAZOL [Concomitant]
     Active Substance: OMEPRAZOLE
     Indication: GASTRITIS
     Route: 048
     Dates: start: 2009
  2. METOPROLOL HYDROCHLOROTHIAZIDE TABLET [Suspect]
     Active Substance: HYDROCHLOROTHIAZIDE\METOPROLOL
     Indication: HYPERTENSION
     Dosage: ROUTE OF ADMINSTRATION: TABLET CONTR REL
     Route: 048
     Dates: start: 2014
  3. SINERGIX (KETOROLAC\TRAMADOL) [Suspect]
     Active Substance: KETOROLAC\TRAMADOL
     Indication: OSTEOARTHRITIS
     Route: 048
     Dates: start: 2016
  4. COMPLEJO B [Concomitant]
     Indication: PAIN
     Dosage: 1 EVERY 3RD DAY
     Route: 030
     Dates: start: 201505, end: 201905

REACTIONS (3)
  - Arthralgia [Not Recovered/Not Resolved]
  - Osteoarthritis [Not Recovered/Not Resolved]
  - Drug interaction [Not Recovered/Not Resolved]

NARRATIVE: CASE EVENT DATE: 2016
